FAERS Safety Report 17945753 (Version 1)
Quarter: 2020Q2

REPORT INFORMATION
  Report Type: Spontaneous
  Country: US (occurrence: US)
  Receive Date: 20200625
  Receipt Date: 20200625
  Transmission Date: 20200714
  Serious: No
  Sender: FDA-Public Use
  Company Number: US-UNITED THERAPEUTICS-UNT-2020-007574

PATIENT
  Age: 68 Year
  Sex: Female
  Weight: 43.08 kg

DRUGS (14)
  1. VITAMIN D3 [Concomitant]
     Active Substance: CHOLECALCIFEROL
     Indication: VITAMIN SUPPLEMENTATION
     Dosage: 500 UNIT, QD
     Route: 048
  2. SYMBICORT [Concomitant]
     Active Substance: BUDESONIDE\FORMOTEROL FUMARATE DIHYDRATE
     Indication: ASTHMA
  3. ORENITRAM [Suspect]
     Active Substance: TREPROSTINIL
     Dosage: 0.625 MG, TID
     Route: 048
  4. PROTONIX [OMEPRAZOLE] [Concomitant]
     Active Substance: OMEPRAZOLE
     Indication: GASTROOESOPHAGEAL REFLUX DISEASE
     Dosage: 40 MG, QD
     Route: 048
  5. PROAIR HFA [Concomitant]
     Active Substance: ALBUTEROL SULFATE
     Indication: ASTHMA
  6. SYMBICORT [Concomitant]
     Active Substance: BUDESONIDE\FORMOTEROL FUMARATE DIHYDRATE
     Indication: CHRONIC OBSTRUCTIVE PULMONARY DISEASE
     Dosage: 1 PUFF, Q4H (NONCOMPLIANT)
  7. ORENITRAM [Suspect]
     Active Substance: TREPROSTINIL
     Indication: PULMONARY ARTERIAL HYPERTENSION
     Dosage: UNK
     Route: 048
     Dates: start: 20200509
  8. ORENITRAM [Suspect]
     Active Substance: TREPROSTINIL
     Dosage: 0.375 MG, TID
     Route: 048
  9. PRAVASTATIN. [Concomitant]
     Active Substance: PRAVASTATIN
     Indication: BLOOD CHOLESTEROL INCREASED
     Dosage: 10 MG, QD
     Route: 048
  10. ADEMPAS [Concomitant]
     Active Substance: RIOCIGUAT
     Indication: PULMONARY ARTERIAL HYPERTENSION
     Dosage: 1.5 MG, TID
     Route: 048
  11. PROAIR HFA [Concomitant]
     Active Substance: ALBUTEROL SULFATE
     Indication: CHRONIC OBSTRUCTIVE PULMONARY DISEASE
     Dosage: 1 PUFF, PRN
  12. ORENITRAM [Suspect]
     Active Substance: TREPROSTINIL
     Dosage: 0.25 MG, TID
     Route: 048
  13. POTASSIUM [Concomitant]
     Active Substance: POTASSIUM
     Indication: HYPOKALAEMIA
     Dosage: 10 MEQ, QD
     Route: 048
  14. LASIX [Concomitant]
     Active Substance: FUROSEMIDE
     Indication: FLUID RETENTION
     Dosage: 20 MG, QD
     Route: 048

REACTIONS (7)
  - Nausea [Recovered/Resolved]
  - Hypotension [Recovering/Resolving]
  - Therapy non-responder [Unknown]
  - Headache [Recovered/Resolved]
  - Diarrhoea [Recovering/Resolving]
  - Vomiting [Recovering/Resolving]
  - Pain in jaw [Not Recovered/Not Resolved]

NARRATIVE: CASE EVENT DATE: 2020
